FAERS Safety Report 13197477 (Version 1)
Quarter: 2017Q1

REPORT INFORMATION
  Report Type: Spontaneous
  Country: US (occurrence: US)
  Receive Date: 20170208
  Receipt Date: 20170208
  Transmission Date: 20170428
  Serious: No
  Sender: FDA-Public Use
  Company Number: US-PERRIGO-16US014547

PATIENT
  Age: 34 Year
  Sex: Male

DRUGS (1)
  1. IBUPROFEN. [Suspect]
     Active Substance: IBUPROFEN
     Indication: OFF LABEL USE
     Dosage: SMALL AMOUNT, SINGLE
     Route: 048
     Dates: start: 20160322, end: 20160322

REACTIONS (3)
  - Dysgeusia [Recovered/Resolved]
  - Throat irritation [Recovered/Resolved]
  - Off label use [Recovered/Resolved]

NARRATIVE: CASE EVENT DATE: 20160322
